FAERS Safety Report 19783062 (Version 1)
Quarter: 2021Q3

REPORT INFORMATION
  Report Type: Spontaneous
  Country: US (occurrence: US)
  Receive Date: 20210902
  Receipt Date: 20210902
  Transmission Date: 20211014
  Serious: No
  Sender: FDA-Public Use
  Company Number: US-ALMIRALL, LLC-2020AQU000430

PATIENT

DRUGS (1)
  1. CLINDAMYCIN PHOSPHATE AND TRETINOIN [Suspect]
     Active Substance: CLINDAMYCIN PHOSPHATE\TRETINOIN
     Indication: ACNE
     Dosage: UNK
     Route: 061

REACTIONS (1)
  - Acne [Not Recovered/Not Resolved]
